FAERS Safety Report 8266643-2 (Version None)
Quarter: 2012Q2

REPORT INFORMATION
  Report Type: 
  Country: None (occurrence: None)
  Receive Date: 20120407
  Receipt Date: 20120328
  Transmission Date: 20120825
  Serious: Yes (Hospitalization)
  Sender: FDA-Public Use
  Company Number: US-ASTRAZENECA-2011SE55410

PATIENT
  Age: 50 Year
  Sex: Female
  Weight: 117.9 kg

DRUGS (14)
  1. VITRONE [Concomitant]
     Indication: ANAEMIA
     Route: 048
  2. ALBUTEROL [Concomitant]
     Indication: ASTHMA
     Dosage: Q 6 H
     Route: 048
  3. PRILOSEC OTC [Suspect]
     Indication: HIATUS HERNIA
     Route: 048
  4. PRILOSEC OTC [Suspect]
     Route: 048
  5. XANAX [Concomitant]
     Indication: ANXIETY
     Dosage: 2 MG EVERY 4-6 H
     Route: 048
  6. SEROQUEL [Suspect]
     Indication: BIPOLAR I DISORDER
     Route: 048
  7. PROMETEZIN [Concomitant]
     Indication: VOMITING
     Route: 048
  8. SEROQUEL [Suspect]
     Indication: POST-TRAUMATIC STRESS DISORDER
     Route: 048
  9. SEROQUEL [Suspect]
     Route: 048
  10. PRILOSEC OTC [Suspect]
     Route: 048
  11. PROZAC [Concomitant]
     Indication: DEPRESSION
     Route: 048
  12. SEROQUEL [Suspect]
     Route: 048
  13. PRILOSEC OTC [Suspect]
     Indication: GASTROOESOPHAGEAL REFLUX DISEASE
     Route: 048
  14. AMBIEN [Concomitant]
     Indication: SLEEP DISORDER
     Route: 048

REACTIONS (10)
  - HAEMORRHAGE [None]
  - PNEUMONIA [None]
  - ADVERSE EVENT [None]
  - OFF LABEL USE [None]
  - DRUG WITHDRAWAL SYNDROME [None]
  - FEAR OF DISEASE [None]
  - HIATUS HERNIA [None]
  - MALAISE [None]
  - ANAEMIA [None]
  - INTENTIONAL DRUG MISUSE [None]
